FAERS Safety Report 9125364 (Version 1)
Quarter: 2013Q1

REPORT INFORMATION
  Report Type: Spontaneous
  Country: US (occurrence: US)
  Receive Date: 20130121
  Receipt Date: 20130121
  Transmission Date: 20140127
  Serious: Yes (Other)
  Sender: FDA-Public Use
  Company Number: US-ELI_LILLY_AND_COMPANY-US201301003306

PATIENT
  Sex: Female
  Weight: 63.95 kg

DRUGS (8)
  1. BYETTA [Suspect]
     Indication: INSULIN-REQUIRING TYPE 2 DIABETES MELLITUS
     Dosage: 5 U, BID
     Route: 058
     Dates: start: 20111027, end: 20111121
  2. BYETTA [Suspect]
     Dosage: 10 UG, BID
     Route: 058
     Dates: start: 20111122, end: 201212
  3. BYETTA [Suspect]
     Dosage: 10 UG, QD
     Route: 058
     Dates: start: 201212, end: 20130107
  4. LEVEMIR [Concomitant]
     Indication: INSULIN-REQUIRING TYPE 2 DIABETES MELLITUS
     Dosage: 20 U, EACH EVENING
     Route: 058
     Dates: start: 20121027
  5. GLUCOPHAGE                              /USA/ [Concomitant]
     Indication: TYPE 2 DIABETES MELLITUS
     Dosage: 1000 MG, BID
     Route: 048
  6. PRINZIDE [Concomitant]
     Indication: HYPERTENSION
     Dosage: 1 DF, QD
     Route: 048
  7. ZOCOR [Concomitant]
     Indication: DYSLIPIDAEMIA
     Dosage: 10 MG, EACH EVENING
     Route: 048
  8. ASPIRIN                                 /USA/ [Concomitant]
     Indication: PROPHYLAXIS
     Dosage: 81 MG, QD
     Route: 048

REACTIONS (4)
  - Thyroid cancer [Not Recovered/Not Resolved]
  - Weight decreased [Unknown]
  - Blood glucose decreased [Recovering/Resolving]
  - Intentional drug misuse [Recovered/Resolved]
